FAERS Safety Report 5954142-X (Version None)
Quarter: 2008Q4

REPORT INFORMATION
  Report Type: 
  Country: None (occurrence: None)
  Receive Date: 20081113
  Receipt Date: 20081113
  Transmission Date: 20090506
  Serious: Yes (Death)
  Sender: FDA-Public Use
  Company Number: None

PATIENT
  Age: 48 Year
  Sex: Female
  Weight: 61.2356 kg

DRUGS (1)
  1. FENTORA [Suspect]
     Indication: PAIN
     Dates: start: 20080911, end: 20080912

REACTIONS (1)
  - MEDICATION ERROR [None]
